FAERS Safety Report 23099963 (Version 1)
Quarter: 2023Q4

REPORT INFORMATION
  Report Type: Spontaneous
  Country: US (occurrence: None)
  Receive Date: 20231023
  Receipt Date: 20231023
  Transmission Date: 20240109
  Serious: Yes (Hospitalization)
  Sender: FDA-Public Use
  Company Number: None

PATIENT
  Age: 73 Year
  Sex: Male

DRUGS (1)
  1. TACROLIMUS [Suspect]
     Active Substance: TACROLIMUS
     Dosage: OTHER FREQUENCY : 4 AM, 2 PM;?
     Route: 048

REACTIONS (2)
  - Herpes zoster [None]
  - Cardiac disorder [None]

NARRATIVE: CASE EVENT DATE: 20231004
